FAERS Safety Report 8738548 (Version 2)
Quarter: 2012Q4

REPORT INFORMATION
  Report Type: 
  Country: JP (occurrence: JP)
  Receive Date: 20120823
  Receipt Date: 20120831
  Transmission Date: 20130627
  Serious: No
  Sender: FDA-Public Use
  Company Number: PHHY2012JP072627

PATIENT
  Age: 17 Year
  Sex: Male

DRUGS (2)
  1. NILOTINIB [Suspect]
     Indication: CHRONIC MYELOID LEUKAEMIA TRANSFORMATION
     Dosage: 800 mg, daily
     Route: 048
  2. ADRENOCORTICOTROPHIC HORMONE [Concomitant]

REACTIONS (1)
  - Rash [Unknown]
